FAERS Safety Report 4514420-8 (Version None)
Quarter: 2004Q4

REPORT INFORMATION
  Report Type: 
  Country: None (occurrence: None)
  Receive Date: 20041124
  Receipt Date: 20041104
  Transmission Date: 20050328
  Serious: Yes (Hospitalization)
  Sender: FDA-Public Use
  Company Number: B0350505A

PATIENT
  Age: 20 Year
  Sex: Male

DRUGS (6)
  1. CHLORPROMAZINE [Suspect]
  2. RISPERDAL [Suspect]
  3. VENLAFAXINE HCL [Suspect]
  4. KEMADRIN [Suspect]
  5. TEMAZEPAM [Suspect]
  6. ANTIBIOTICS [Concomitant]

REACTIONS (8)
  - BLOOD CREATINE PHOSPHOKINASE INCREASED [None]
  - CELLULITIS [None]
  - COMPARTMENT SYNDROME [None]
  - OEDEMA PERIPHERAL [None]
  - PAIN IN EXTREMITY [None]
  - SENSORY DISTURBANCE [None]
  - SKIN GRAFT [None]
  - TENSION [None]
